FAERS Safety Report 7223420-9 (Version None)
Quarter: 2011Q1

REPORT INFORMATION
  Report Type: 
  Country: None (occurrence: None)
  Receive Date: 20110112
  Receipt Date: 20100618
  Transmission Date: 20110831
  Serious: No
  Sender: FDA-Public Use
  Company Number: US-ALLERGAN-1007992US

PATIENT
  Age: 85 Year
  Sex: Female

DRUGS (3)
  1. SYSTANE [Concomitant]
  2. RESTASIS [Suspect]
     Indication: DRY EYE
     Dosage: 1 GTT, BID
     Dates: start: 20100522
  3. GENTEAL [Concomitant]

REACTIONS (2)
  - EYE PAIN [None]
  - EYE IRRITATION [None]
